FAERS Safety Report 6384279-5 (Version None)
Quarter: 2009Q4

REPORT INFORMATION
  Report Type: 
  Country: None (occurrence: None)
  Receive Date: 20091001
  Receipt Date: 20090924
  Transmission Date: 20100525
  Serious: Yes (Hospitalization)
  Sender: FDA-Public Use
  Company Number: JP-MERCK-0907USA01854

PATIENT
  Age: 60 Year
  Sex: Female

DRUGS (12)
  1. FOSAMAX [Suspect]
     Indication: OSTEOPOROSIS
     Route: 048
     Dates: start: 20090514, end: 20090701
  2. ASPIRIN [Suspect]
     Indication: THROMBOSIS PROPHYLAXIS
     Route: 048
     Dates: start: 20060524, end: 20090701
  3. MUCOSTA [Concomitant]
     Indication: GASTRITIS
     Route: 048
     Dates: start: 20090514
  4. TAKEPRON [Concomitant]
     Indication: REFLUX OESOPHAGITIS
     Route: 048
     Dates: start: 20090514
  5. GLAKAY [Concomitant]
     Indication: OSTEOPOROSIS PROPHYLAXIS
     Route: 048
     Dates: start: 20090514, end: 20090701
  6. LASIX [Concomitant]
     Indication: POLYURIA
     Route: 048
     Dates: start: 20041008
  7. CALTAN [Concomitant]
     Indication: HYPERPHOSPHATAEMIA
     Route: 048
     Dates: start: 20050121, end: 20090701
  8. TANATRIL [Concomitant]
     Indication: HYPERTENSION
     Route: 048
     Dates: start: 20041008
  9. ONEALFA [Concomitant]
     Indication: HYPERPARATHYROIDISM SECONDARY
     Route: 048
     Dates: start: 20080804, end: 20090701
  10. LIPITOR [Concomitant]
     Indication: HYPERLIPIDAEMIA
     Route: 048
     Dates: start: 20050824, end: 20090701
  11. PREDNISOLONE [Suspect]
     Indication: VOGT-KOYANAGI-HARADA SYNDROME
     Route: 048
     Dates: start: 20090514
  12. HEPARIN SODIUM [Suspect]
     Indication: DIALYSIS
     Route: 042
     Dates: start: 20050301, end: 20090701

REACTIONS (2)
  - HAEMATOMA [None]
  - OESOPHAGEAL ULCER [None]
